FAERS Safety Report 23021123 (Version 1)
Quarter: 2023Q4

REPORT INFORMATION
  Report Type: Other
  Country: None (occurrence: CA)
  Receive Date: 20231003
  Receipt Date: 20231003
  Transmission Date: 20240110
  Serious: Yes (Life-Threatening, Hospitalization, Other)
  Sender: FDA-Public Use
  Company Number: CA-Marksans Pharma Limited-2146546

PATIENT
  Age: 31 Year
  Sex: Female

DRUGS (1)
  1. ACETAMINOPHEN [Suspect]
     Active Substance: ACETAMINOPHEN
     Indication: Toothache
     Route: 065

REACTIONS (12)
  - Vomiting [Recovered/Resolved]
  - Seizure [Recovered/Resolved]
  - Agitation [Recovered/Resolved]
  - Eclampsia [Recovered/Resolved]
  - Caesarean section [Recovered/Resolved]
  - Metabolic acidosis [Recovered/Resolved]
  - Hyperkalaemia [Recovered/Resolved]
  - Liver injury [Recovered/Resolved]
  - Maternal hypertension affecting foetus [Recovered/Resolved]
  - Tachycardia [Recovered/Resolved]
  - Exposure during pregnancy [Unknown]
  - Intentional product use issue [Unknown]
